FAERS Safety Report 16106627 (Version 1)
Quarter: 2019Q1

REPORT INFORMATION
  Report Type: Spontaneous
  Country: BR (occurrence: BR)
  Receive Date: 20190322
  Receipt Date: 20190322
  Transmission Date: 20190418
  Serious: Yes (Hospitalization, Other)
  Sender: FDA-Public Use
  Company Number: BR-009507513-1903BRA007878

PATIENT
  Sex: Female
  Weight: 68 kg

DRUGS (8)
  1. PROPRANOLOL [Suspect]
     Active Substance: PROPRANOLOL HYDROCHLORIDE
     Dosage: UNK
  2. CEFUROXIME AXETIL. [Suspect]
     Active Substance: CEFUROXIME AXETIL
     Dosage: UNK
  3. AMPLICTIL [Suspect]
     Active Substance: CHLORPROMAZINE HYDROCHLORIDE
     Dosage: UNK
  4. KLARICID [Suspect]
     Active Substance: CLARITHROMYCIN
     Dosage: UNK
  5. AMOXICILLIN. [Suspect]
     Active Substance: AMOXICILLIN
     Dosage: UNK
  6. HALDOL [Suspect]
     Active Substance: HALOPERIDOL
     Dosage: UNK
  7. DESALEX [Suspect]
     Active Substance: DESLORATADINE
     Indication: HYPERSENSITIVITY
     Dosage: STRENGHT 5MG, UNK
     Route: 048
  8. FLUNARIN [Suspect]
     Active Substance: FLUNARIZINE HYDROCHLORIDE
     Dosage: UNK

REACTIONS (21)
  - Scoliosis [Unknown]
  - Heart rate abnormal [Unknown]
  - Tachycardia [Not Recovered/Not Resolved]
  - Rash [Unknown]
  - Malnutrition [Unknown]
  - Pneumonia [Unknown]
  - Dermatitis allergic [Unknown]
  - Headache [Recovered/Resolved]
  - Arrhythmia [Unknown]
  - Migraine [Unknown]
  - Dehydration [Unknown]
  - Bradycardia [Unknown]
  - Hyperhidrosis [Recovered/Resolved]
  - Rash generalised [Unknown]
  - Blood pressure decreased [Unknown]
  - Abdominal pain [Unknown]
  - Syncope [Unknown]
  - Swollen tongue [Unknown]
  - Lip swelling [Unknown]
  - Myalgia [Unknown]
  - Fatigue [Unknown]

NARRATIVE: CASE EVENT DATE: 2016
